FAERS Safety Report 21303056 (Version 1)
Quarter: 2022Q3

REPORT INFORMATION
  Report Type: Spontaneous
  Country: FR (occurrence: FR)
  Receive Date: 20220907
  Receipt Date: 20220907
  Transmission Date: 20221026
  Serious: Yes (Hospitalization, Other)
  Sender: FDA-Public Use
  Company Number: None

PATIENT
  Age: 14 Year
  Sex: Male

DRUGS (1)
  1. TRAMADOL [Suspect]
     Active Substance: TRAMADOL
     Indication: Product used for unknown indication
     Dosage: 25 CAPSULES OPENED THEN FILTERED ANNOUNCED
     Route: 048
     Dates: start: 202207, end: 202207

REACTIONS (4)
  - Bladder dilatation [Recovered/Resolved]
  - Miosis [Recovered/Resolved]
  - Intentional product misuse [Recovered/Resolved]
  - Depressed level of consciousness [Recovered/Resolved]

NARRATIVE: CASE EVENT DATE: 20220701
